FAERS Safety Report 12608748 (Version 3)
Quarter: 2017Q1

REPORT INFORMATION
  Report Type: Spontaneous
  Country: US (occurrence: US)
  Receive Date: 20160729
  Receipt Date: 20170323
  Transmission Date: 20170428
  Serious: Yes (Death, Hospitalization)
  Sender: FDA-Public Use
  Company Number: US-BIOMARINAP-US-2016-110577

PATIENT
  Sex: Female
  Weight: .68 kg

DRUGS (1)
  1. KUVAN [Suspect]
     Active Substance: SAPROPTERIN DIHYDROCHLORIDE
     Indication: PHENYLKETONURIA
     Dosage: 1500 MG, QD
     Route: 064
     Dates: start: 20160328, end: 201607

REACTIONS (3)
  - Premature baby [Fatal]
  - Low birth weight baby [Unknown]
  - Cerebral haemorrhage neonatal [Unknown]
